FAERS Safety Report 4774538-1 (Version None)
Quarter: 2005Q3

REPORT INFORMATION
  Report Type: 
  Country: None (occurrence: None)
  Receive Date: 20050919
  Receipt Date: 20050919
  Transmission Date: 20060218
  Serious: No
  Sender: FDA-Public Use
  Company Number: None

PATIENT
  Sex: Male
  Weight: 92.99 kg

DRUGS (11)
  1. CLOZAPINE [Suspect]
     Indication: SCHIZOAFFECTIVE DISORDER
     Dosage: SEE IMAGE
     Route: 048
     Dates: start: 20050513, end: 20050804
  2. CLOZAPINE [Suspect]
     Indication: SCHIZOAFFECTIVE DISORDER
     Dosage: SEE IMAGE
     Route: 048
     Dates: start: 20050513, end: 20050804
  3. BENZTROPINE [Concomitant]
  4. FILGRASTIM [Concomitant]
  5. HALOPERIDOL [Concomitant]
  6. LITHIUM CARBONATE [Concomitant]
  7. LOPERIMIDE [Concomitant]
  8. LORAZEPAM [Concomitant]
  9. METOCLOPRAMIDE [Concomitant]
  10. RIBAVIRIN [Concomitant]
  11. ZOLPIDEM [Concomitant]

REACTIONS (1)
  - NEUTROPHIL COUNT DECREASED [None]
